FAERS Safety Report 5128460-1 (Version None)
Quarter: 2006Q4

REPORT INFORMATION
  Report Type: 
  Country: None (occurrence: None)
  Receive Date: 20061017
  Receipt Date: 20061003
  Transmission Date: 20070319
  Serious: Yes (Other)
  Sender: FDA-Public Use
  Company Number: PHBS2006BR15383

PATIENT
  Age: 27 Year
  Sex: Male
  Weight: 70 kg

DRUGS (2)
  1. TOFRANIL [Suspect]
     Indication: INCORRECT DOSE ADMINISTERED
     Dosage: 400 MG, ONCE/SINGLE
     Route: 048
     Dates: start: 20061003, end: 20061003
  2. DIAZEPAM [Suspect]
     Indication: INCORRECT DOSE ADMINISTERED
     Dosage: 4 DF, ONCE/SINGLE
     Route: 048
     Dates: start: 20061003, end: 20061003

REACTIONS (6)
  - ABNORMAL BEHAVIOUR [None]
  - FACE OEDEMA [None]
  - INTENTIONAL OVERDOSE [None]
  - SOMNOLENCE [None]
  - SUICIDE ATTEMPT [None]
  - VOMITING [None]
